FAERS Safety Report 19847713 (Version 1)
Quarter: 2021Q3

REPORT INFORMATION
  Report Type: Report from Study
  Country: US (occurrence: US)
  Receive Date: 20210917
  Receipt Date: 20210917
  Transmission Date: 20211014
  Serious: Yes (Other)
  Sender: FDA-Public Use
  Company Number: US-JAZZ-2021-US-017131

PATIENT
  Sex: Female

DRUGS (5)
  1. XYREM [Suspect]
     Active Substance: SODIUM OXYBATE
     Dosage: DOSE ADJUSTMENT
     Route: 048
     Dates: start: 201405, end: 202004
  2. XYREM [Suspect]
     Active Substance: SODIUM OXYBATE
     Indication: NARCOLEPSY
     Dosage: 2 GRAM, FIRST DOSE
     Route: 048
     Dates: start: 201403, end: 201405
  3. XYREM [Suspect]
     Active Substance: SODIUM OXYBATE
     Dosage: 3 GRAM, SECOND DOSE
     Route: 048
     Dates: start: 201403, end: 201405
  4. XYREM [Suspect]
     Active Substance: SODIUM OXYBATE
     Dosage: 2 GRAM, FIRST DOSE
     Route: 048
     Dates: start: 202004, end: 202107
  5. XYREM [Suspect]
     Active Substance: SODIUM OXYBATE
     Dosage: 1.5 GRAM, SECOND DOSE
     Route: 048
     Dates: start: 202004, end: 202107

REACTIONS (5)
  - Ligament sprain [Unknown]
  - Seizure [Recovered/Resolved]
  - Peripheral swelling [Unknown]
  - Fall [Recovered/Resolved]
  - Pain in extremity [Recovered/Resolved]

NARRATIVE: CASE EVENT DATE: 2021
